FAERS Safety Report 6338576-X (Version None)
Quarter: 2009Q3

REPORT INFORMATION
  Report Type: 
  Country: None (occurrence: None)
  Receive Date: 20090903
  Receipt Date: 20071017
  Transmission Date: 20100115
  Serious: Yes (Other)
  Sender: FDA-Public Use
  Company Number: US-ASTRAZENECA-2006UW22879

PATIENT
  Age: 54 Year
  Sex: Female
  Weight: 112 kg

DRUGS (21)
  1. SEROQUEL [Suspect]
     Indication: BIPOLAR DISORDER
     Route: 048
     Dates: start: 20020101, end: 20050101
  2. SEROQUEL [Suspect]
     Indication: SCHIZOPHRENIA
     Route: 048
     Dates: start: 20020101, end: 20050101
  3. SEROQUEL [Suspect]
     Route: 048
     Dates: start: 20041027
  4. SEROQUEL [Suspect]
     Route: 048
     Dates: start: 20041027
  5. SEROQUEL [Suspect]
     Route: 048
     Dates: start: 20050801
  6. SEROQUEL [Suspect]
     Route: 048
     Dates: start: 20050801
  7. RISPERDAL [Concomitant]
  8. RISPERDAL [Concomitant]
     Dates: start: 20040804
  9. WELLBUTRIN [Concomitant]
  10. LEXAPRO [Concomitant]
  11. LEXAPRO [Concomitant]
     Dates: start: 20040804
  12. TOPAMAX [Concomitant]
  13. ACCUPRIL [Concomitant]
     Route: 048
     Dates: start: 20040804
  14. GLUCOVANCE [Concomitant]
     Dosage: 1.25/250, DAILY
     Dates: start: 20040804
  15. SYNTHROID [Concomitant]
     Dates: start: 20040804
  16. MOBIC [Concomitant]
     Dates: start: 20040804
  17. LORCET-HD [Concomitant]
     Dosage: 7.5/650, DAILY
     Dates: start: 20040804
  18. PERCOCET [Concomitant]
     Dates: start: 20040804
  19. NORVASC [Concomitant]
     Dosage: 5MG-10MG
     Dates: start: 20000214
  20. LIPITOR [Concomitant]
     Dates: start: 20061013
  21. SKELAXIN [Concomitant]
     Dates: start: 20061013

REACTIONS (6)
  - DIABETES MELLITUS [None]
  - DIABETIC NEUROPATHY [None]
  - HYPERGLYCAEMIA [None]
  - NEUROLEPTIC MALIGNANT SYNDROME [None]
  - OBESITY [None]
  - TYPE 1 DIABETES MELLITUS [None]
